FAERS Safety Report 5781370-9 (Version None)
Quarter: 2008Q2

REPORT INFORMATION
  Report Type: 
  Country: None (occurrence: None)
  Receive Date: 20080619
  Receipt Date: 20080606
  Transmission Date: 20081010
  Serious: Yes (Other)
  Sender: FDA-Public Use
  Company Number: EBT 2008-0089

PATIENT
  Age: 55 Year
  Sex: Female

DRUGS (7)
  1. COMTAN [Suspect]
     Indication: PARKINSON'S DISEASE
     Dates: start: 20070101
  2. LUNESTA [Concomitant]
  3. AMBIEN [Concomitant]
  4. XANAX [Concomitant]
  5. BENADRYL [Concomitant]
  6. TRAZODONE HCL [Concomitant]
  7. BUSPAR [Concomitant]

REACTIONS (2)
  - CONDITION AGGRAVATED [None]
  - PARKINSONISM [None]
